FAERS Safety Report 21695766 (Version 1)
Quarter: 2022Q4

REPORT INFORMATION
  Report Type: Spontaneous
  Country: US (occurrence: None)
  Receive Date: 20221206
  Receipt Date: 20221206
  Transmission Date: 20230113
  Serious: No
  Sender: FDA-Public Use
  Company Number: None

PATIENT
  Age: 47 Year
  Sex: Female

DRUGS (1)
  1. CAPECITABINE [Suspect]
     Active Substance: CAPECITABINE
     Dosage: FREQUENCY : TWICE A DAY;?
     Route: 048
     Dates: start: 202202

REACTIONS (6)
  - Confusional state [None]
  - SARS-CoV-2 test positive [None]
  - Abdominal distension [None]
  - Flatulence [None]
  - Therapy interrupted [None]
  - Off label use [None]

NARRATIVE: CASE EVENT DATE: 20221116
